FAERS Safety Report 11534323 (Version 1)
Quarter: 2015Q3

REPORT INFORMATION
  Report Type: Spontaneous
  Country: ES (occurrence: ES)
  Receive Date: 20150922
  Receipt Date: 20150922
  Transmission Date: 20151125
  Serious: Yes (Hospitalization)
  Sender: FDA-Public Use
  Company Number: ES-TEVA-595285ISR

PATIENT
  Age: 82 Year
  Sex: Female

DRUGS (8)
  1. RIVOTRIL [Concomitant]
     Active Substance: CLONAZEPAM
     Route: 048
     Dates: start: 201412, end: 20150629
  2. ORFIDAL [Concomitant]
     Active Substance: LORAZEPAM
  3. CLEXANE / ENOXAPARIN SODIUM [Concomitant]
     Indication: THROMBOPHLEBITIS SUPERFICIAL
     Dosage: 60 MILLIGRAM DAILY;
     Dates: start: 20150601, end: 20150626
  4. AZILECT [Suspect]
     Active Substance: RASAGILINE MESYLATE
     Indication: PARKINSON^S DISEASE
     Dosage: 1 MILLIGRAM DAILY;
     Route: 048
     Dates: start: 20150529, end: 20150529
  5. DULOXETINE. [Suspect]
     Active Substance: DULOXETINE
     Indication: DEPRESSION
     Dosage: 60 MILLIGRAM DAILY;
     Dates: start: 201505
  6. LEVODOPA + [Suspect]
     Active Substance: CARBIDOPA\LEVODOPA
     Indication: PARKINSON^S DISEASE
     Dates: start: 201505, end: 20150629
  7. AZOPT [Concomitant]
     Active Substance: BRINZOLAMIDE
  8. ENALAPRIL / HYDROCHLOROTIAZIDE [Concomitant]

REACTIONS (4)
  - Vomiting [Not Recovered/Not Resolved]
  - Orthostatic hypotension [Not Recovered/Not Resolved]
  - Acute kidney injury [Not Recovered/Not Resolved]
  - Diarrhoea [Not Recovered/Not Resolved]

NARRATIVE: CASE EVENT DATE: 20150619
